FAERS Safety Report 8098082 (Version 2)
Quarter: 2013Q1

REPORT INFORMATION
  Report Type: Spontaneous
  Country: US (occurrence: US)
  Receive Date: 20110819
  Receipt Date: 20130219
  Transmission Date: 20140127
  Serious: Yes (Other)
  Sender: FDA-Public Use
  Company Number: US-ROCHE-797439

PATIENT
  Age: 18 None
  Sex: Female
  Weight: 65.83 kg

DRUGS (2)
  1. ACCUTANE [Suspect]
     Indication: ACNE
     Route: 065
     Dates: start: 20000615, end: 20010511
  2. ACCUTANE [Suspect]
     Route: 065
     Dates: start: 20060101, end: 20060117

REACTIONS (9)
  - Colitis ulcerative [Unknown]
  - Inflammatory bowel disease [Unknown]
  - Colon injury [Unknown]
  - Depression [Not Recovered/Not Resolved]
  - Injury [Unknown]
  - Suicidal ideation [Unknown]
  - Mental disorder [Unknown]
  - Irritable bowel syndrome [Unknown]
  - Headache [Unknown]
